FAERS Safety Report 4894942-0 (Version None)
Quarter: 2006Q1

REPORT INFORMATION
  Report Type: 
  Country: None (occurrence: None)
  Receive Date: 20060130
  Receipt Date: 20050420
  Transmission Date: 20060701
  Serious: No
  Sender: FDA-Public Use
  Company Number: US-BRISTOL-MYERS SQUIBB COMPANY-12941233

PATIENT
  Age: 64 Year
  Sex: Female
  Weight: 73 kg

DRUGS (5)
  1. GLUCOPHAGE [Suspect]
     Indication: DIABETES MELLITUS
     Dosage: SOMETIMES TAKES METFORMIN 850MG TID
     Dates: start: 19960101
  2. LISINOPRIL [Concomitant]
  3. NIFEDIPINE [Concomitant]
  4. GLYBURIDE [Concomitant]
  5. LOVASTATIN [Concomitant]

REACTIONS (2)
  - CONSTIPATION [None]
  - DIARRHOEA [None]
